FAERS Safety Report 5507651-1 (Version None)
Quarter: 2007Q4

REPORT INFORMATION
  Report Type: 
  Country: None (occurrence: None)
  Receive Date: 20071106
  Receipt Date: 20071025
  Transmission Date: 20080405
  Serious: Yes (Hospitalization)
  Sender: FDA-Public Use
  Company Number: AU-NOVOPROD-268827

PATIENT

DRUGS (4)
  1. NOVORAPID [Suspect]
     Indication: DIABETES MELLITUS
     Dosage: UNK, UNK
  2. PROTAPHANE [Suspect]
     Indication: DIABETES MELLITUS
  3. MORPHINE [Concomitant]
     Indication: SPINAL DISORDER
     Dosage: 50 UG, UNK
  4. NOTEN [Concomitant]
     Dates: start: 20060801

REACTIONS (1)
  - ANGINA PECTORIS [None]
